FAERS Safety Report 11316064 (Version 5)
Quarter: 2016Q2

REPORT INFORMATION
  Report Type: Report from Study
  Country: PT (occurrence: PT)
  Receive Date: 20150728
  Receipt Date: 20160627
  Transmission Date: 20160815
  Serious: Yes (Other)
  Sender: FDA-Public Use
  Company Number: PHHY2015PT074892

PATIENT
  Age: 39 Year
  Sex: Male

DRUGS (16)
  1. TEGRETOL CR [Suspect]
     Active Substance: CARBAMAZEPINE
     Indication: TRIGEMINAL NEURALGIA
     Dosage: 400 CR MG +200 CR MG (BREAKFAST), 400 CR MG (LUNCH), 400 CR MG + 200 CR MG (DINNER)
     Route: 065
  2. TEGRETOL CR [Suspect]
     Active Substance: CARBAMAZEPINE
     Dosage: 1600 MG, QD
     Route: 065
  3. GABAPENTINA [Suspect]
     Active Substance: GABAPENTIN
     Indication: TRIGEMINAL NEURALGIA
     Dosage: UNK
     Route: 065
  4. DIAZEPAM. [Concomitant]
     Active Substance: DIAZEPAM
     Indication: PRODUCT USED FOR UNKNOWN INDICATION
     Route: 065
  5. DITROPAN [Concomitant]
     Active Substance: OXYBUTYNIN CHLORIDE
     Indication: PRODUCT USED FOR UNKNOWN INDICATION
     Route: 065
  6. GABAPENTINA [Suspect]
     Active Substance: GABAPENTIN
     Dosage: 2400 MG, QD
     Route: 065
  7. GABAPENTINA [Suspect]
     Active Substance: GABAPENTIN
     Dosage: 900 OT, TID
     Route: 065
  8. SERTRALINE [Concomitant]
     Active Substance: SERTRALINE HYDROCHLORIDE
     Indication: PRODUCT USED FOR UNKNOWN INDICATION
     Route: 065
  9. GABAPENTINA [Suspect]
     Active Substance: GABAPENTIN
     Dosage: 300 MG, QD
     Route: 065
  10. OMEPRAZOLE. [Concomitant]
     Active Substance: OMEPRAZOLE
     Indication: PRODUCT USED FOR UNKNOWN INDICATION
     Route: 065
  11. GILENYA [Suspect]
     Active Substance: FINGOLIMOD HYDROCHLORIDE
     Indication: MULTIPLE SCLEROSIS
     Dosage: 0.5 MG, QD
     Route: 048
     Dates: start: 20130617
  12. GABAPENTINA [Suspect]
     Active Substance: GABAPENTIN
     Dosage: 700 OT, TID
     Route: 065
  13. ZOLPIDEM [Concomitant]
     Active Substance: ZOLPIDEM\ZOLPIDEM TARTRATE
     Indication: PRODUCT USED FOR UNKNOWN INDICATION
     Route: 065
  14. PARKADINA [Concomitant]
     Indication: PRODUCT USED FOR UNKNOWN INDICATION
     Route: 065
  15. RIVOTRIL [Concomitant]
     Active Substance: CLONAZEPAM
     Indication: PRODUCT USED FOR UNKNOWN INDICATION
     Route: 065
  16. ZEBINIX [Concomitant]
     Active Substance: ESLICARBAZEPINE ACETATE
     Indication: MUSCLE SPASMS
     Dosage: 800 MG, QD (AT NIGHT)
     Route: 048

REACTIONS (13)
  - Cognitive disorder [Not Recovered/Not Resolved]
  - Pain [Unknown]
  - Fall [Not Recovered/Not Resolved]
  - Oral pain [Unknown]
  - Facial pain [Unknown]
  - Depression [Not Recovered/Not Resolved]
  - Feeling abnormal [Not Recovered/Not Resolved]
  - Lower limb fracture [Recovered/Resolved]
  - Memory impairment [Not Recovered/Not Resolved]
  - Balance disorder [Not Recovered/Not Resolved]
  - Concomitant disease aggravated [Not Recovered/Not Resolved]
  - Fatigue [Not Recovered/Not Resolved]
  - Trigeminal neuralgia [Not Recovered/Not Resolved]

NARRATIVE: CASE EVENT DATE: 201503
